FAERS Safety Report 12619325 (Version 1)
Quarter: 2016Q3

REPORT INFORMATION
  Report Type: Spontaneous
  Country: CA (occurrence: CA)
  Receive Date: 20160803
  Receipt Date: 20160803
  Transmission Date: 20161109
  Serious: Yes (Hospitalization)
  Sender: FDA-Public Use
  Company Number: CA-FRESENIUS KABI-FK201604976

PATIENT
  Age: 17 Year
  Sex: Female
  Weight: 57 kg

DRUGS (6)
  1. EMEND [Concomitant]
     Active Substance: APREPITANT
  2. ETOPOSIDE. [Concomitant]
     Active Substance: ETOPOSIDE
  3. NABILONE [Concomitant]
     Active Substance: NABILONE
  4. ALOXI [Concomitant]
     Active Substance: PALONOSETRON HYDROCHLORIDE
  5. OLANZAPINE. [Concomitant]
     Active Substance: OLANZAPINE
  6. IFOSFAMIDE (MANUFACTURER UNKNOWN) [Suspect]
     Active Substance: IFOSFAMIDE
     Indication: EWING^S SARCOMA
     Route: 042

REACTIONS (3)
  - Transient global amnesia [Recovered/Resolved]
  - Sedation [Recovered/Resolved]
  - Feeling abnormal [Recovered/Resolved]
